FAERS Safety Report 11263381 (Version 4)
Quarter: 2015Q4

REPORT INFORMATION
  Report Type: Report from Study
  Country: PL (occurrence: PL)
  Receive Date: 20150712
  Receipt Date: 20151120
  Transmission Date: 20160304
  Serious: Yes (Hospitalization)
  Sender: FDA-Public Use
  Company Number: PL-ROCHE-1603388

PATIENT
  Age: 69 Year
  Sex: Male
  Weight: 71 kg

DRUGS (26)
  1. SIMVASTATIN. [Concomitant]
     Active Substance: SIMVASTATIN
     Route: 065
     Dates: start: 20111214
  2. INSULIN DETEMIR [Concomitant]
     Active Substance: INSULIN DETEMIR
     Route: 065
     Dates: start: 20110606
  3. CARVEDILOL. [Concomitant]
     Active Substance: CARVEDILOL
     Route: 065
     Dates: start: 20090529
  4. HEPARIN [Concomitant]
     Active Substance: HEPARIN SODIUM
     Route: 065
     Dates: start: 20110301
  5. NACL .9% [Concomitant]
     Route: 065
     Dates: start: 20110518
  6. ALLOPURINOL. [Concomitant]
     Active Substance: ALLOPURINOL
     Route: 065
     Dates: start: 20150527, end: 20150530
  7. METHOXY POLYETHYLENE GLYCOL-EPOETIN BETA [Suspect]
     Active Substance: METHOXY POLYETHYLENE GLYCOL-EPOETIN BETA
     Dosage: ON 07/NOV/2014, THE PATIENT RECEIVED THE LAST DOSE OF METHOXY POLYETHYLENE GLYCOL-EPOETIN BETA PRIOR
     Route: 042
  8. ACIDUM FOLICUM [Concomitant]
     Active Substance: FOLIC ACID
     Route: 065
     Dates: start: 20091106
  9. INSULIN ASPART [Concomitant]
     Active Substance: INSULIN ASPART
     Route: 065
     Dates: start: 20110606
  10. FENOFIBRATE. [Concomitant]
     Active Substance: FENOFIBRATE
     Route: 065
     Dates: start: 20111214, end: 20141205
  11. DEXTRAN [Concomitant]
     Active Substance: DEXTRAN
     Route: 065
     Dates: start: 20110527
  12. NACL .9% [Concomitant]
     Route: 065
     Dates: start: 20110124
  13. FUROSEMIDE. [Concomitant]
     Active Substance: FUROSEMIDE
     Route: 065
  14. ACETYLSALICYLIC ACID [Concomitant]
     Active Substance: ASPIRIN
     Route: 065
     Dates: start: 20040727
  15. ALLOPURINOL. [Concomitant]
     Active Substance: ALLOPURINOL
     Route: 065
     Dates: start: 20040803, end: 20141209
  16. METHOXY POLYETHYLENE GLYCOL-EPOETIN BETA [Suspect]
     Active Substance: METHOXY POLYETHYLENE GLYCOL-EPOETIN BETA
     Dosage: ON 06/MAY/2015, THE PATIENT RECEIVED THE LAST DOSE OF METHOXY POLYETHYLENE GLYCOL-EPOETIN BETA PRIOR
     Route: 042
  17. METHOXY POLYETHYLENE GLYCOL-EPOETIN BETA [Suspect]
     Active Substance: METHOXY POLYETHYLENE GLYCOL-EPOETIN BETA
     Dosage: ON 08/AUG/2012, THE PATIENT RECEIVED THE LAST DOSE OF METHOXY POLYETHYLENE GLYCOL-EPOETIN BETA PRIOR
     Route: 042
  18. FUROSEMIDE. [Concomitant]
     Active Substance: FUROSEMIDE
     Route: 065
     Dates: start: 20061114
  19. CALCIUM CARBONATE. [Concomitant]
     Active Substance: CALCIUM CARBONATE
     Route: 065
     Dates: start: 20040727
  20. FENOFIBRATE. [Concomitant]
     Active Substance: FENOFIBRATE
     Route: 065
     Dates: start: 20150703
  21. METHOXY POLYETHYLENE GLYCOL-EPOETIN BETA [Suspect]
     Active Substance: METHOXY POLYETHYLENE GLYCOL-EPOETIN BETA
     Dosage: MOST RECENT DOSE PRIOR TO MYOCARDIAL INFARCTION - SECOND OCCURRENCE
     Route: 042
     Dates: start: 20150907
  22. CLONIDINE. [Concomitant]
     Active Substance: CLONIDINE
     Dosage: TOTAL DAILY DOSE: 2-4 TABLETS
     Route: 065
     Dates: start: 20090710
  23. PANTOPRAZOLE [Concomitant]
     Active Substance: PANTOPRAZOLE SODIUM
     Route: 065
     Dates: start: 20090529
  24. NATRIUM BICARBONICUM [Concomitant]
     Route: 065
     Dates: start: 20140125
  25. METHOXY POLYETHYLENE GLYCOL-EPOETIN BETA [Suspect]
     Active Substance: METHOXY POLYETHYLENE GLYCOL-EPOETIN BETA
     Indication: NEPHROGENIC ANAEMIA
     Route: 042
     Dates: start: 20110907
  26. NATRIUM BICARBONICUM [Concomitant]
     Route: 065
     Dates: start: 20140125, end: 20150703

REACTIONS (4)
  - Coronary artery disease [Recovered/Resolved]
  - Myocardial infarction [Recovered/Resolved]
  - Acute myocardial infarction [Recovered/Resolved with Sequelae]
  - Myocardial infarction [Recovered/Resolved with Sequelae]

NARRATIVE: CASE EVENT DATE: 20120809
